FAERS Safety Report 21605421 (Version 1)
Quarter: 2022Q4

REPORT INFORMATION
  Report Type: Spontaneous
  Country: US (occurrence: US)
  Receive Date: 20221116
  Receipt Date: 20221116
  Transmission Date: 20230113
  Serious: No
  Sender: FDA-Public Use
  Company Number: US-PERRIGO-22US012403

PATIENT
  Sex: Male

DRUGS (2)
  1. POLYETHYLENE GLYCOL 3350 [Suspect]
     Active Substance: POLYETHYLENE GLYCOL 3350
     Indication: Constipation
     Dosage: 17 G, TWICE
     Route: 048
     Dates: start: 20220829, end: 20220829
  2. POLYETHYLENE GLYCOL 3350 [Suspect]
     Active Substance: POLYETHYLENE GLYCOL 3350
     Dosage: UNK, PRN
     Route: 048
     Dates: start: 2022, end: 2022

REACTIONS (3)
  - Diarrhoea [None]
  - Inappropriate schedule of product administration [None]
  - Incorrect dose administered [None]
